FAERS Safety Report 18605953 (Version 1)
Quarter: 2020Q4

REPORT INFORMATION
  Report Type: Spontaneous
  Country: FR (occurrence: FR)
  Receive Date: 20201211
  Receipt Date: 20201211
  Transmission Date: 20210114
  Serious: Yes (Other)
  Sender: FDA-Public Use
  Company Number: FR-MYLANLABS-2020M1100575

PATIENT
  Age: 48 Year
  Sex: Male

DRUGS (3)
  1. LOXAPINE SUCCINATE. [Suspect]
     Active Substance: LOXAPINE SUCCINATE
     Indication: MENTAL DISORDER
     Dosage: 50 GTT DROPS, QD
     Route: 048
     Dates: start: 20200604
  2. DIAZEPAM. [Suspect]
     Active Substance: DIAZEPAM
     Indication: MENTAL DISORDER
     Dosage: 25 MILLIGRAM, PRN
     Dates: start: 20200604
  3. ARIPIPRAZOLE. [Suspect]
     Active Substance: ARIPIPRAZOLE
     Indication: MENTAL DISORDER
     Dosage: 10 MILLIGRAM, QD
     Route: 048
     Dates: start: 20200606, end: 20200613

REACTIONS (4)
  - Transaminases increased [Recovering/Resolving]
  - Hepatic steatosis [Not Recovered/Not Resolved]
  - Hepatic cyst [Unknown]
  - Gamma-glutamyltransferase increased [Recovering/Resolving]

NARRATIVE: CASE EVENT DATE: 202006
